FAERS Safety Report 4817633-0 (Version None)
Quarter: 2005Q4

REPORT INFORMATION
  Report Type: 
  Country: None (occurrence: None)
  Receive Date: 20051019
  Receipt Date: 20050803
  Transmission Date: 20060501
  Serious: Yes (Hospitalization)
  Sender: FDA-Public Use
  Company Number: PHEH2005US08603

PATIENT
  Age: 80 Year
  Sex: Female

DRUGS (1)
  1. MIACALCIN [Suspect]
     Indication: BONE DENSITY DECREASED
     Dosage: QD, INTRANASAL
     Dates: start: 20050701, end: 20050715

REACTIONS (4)
  - FATIGUE [None]
  - HEADACHE [None]
  - RASH [None]
  - STOMATITIS [None]
